FAERS Safety Report 11924021 (Version 1)
Quarter: 2016Q1

REPORT INFORMATION
  Report Type: Spontaneous
  Country: FR (occurrence: FR)
  Receive Date: 20160118
  Receipt Date: 20160118
  Transmission Date: 20160526
  Serious: Yes (Hospitalization)
  Sender: FDA-Public Use
  Company Number: FR-ROCHE-1696038

PATIENT
  Age: 42 Year
  Sex: Male

DRUGS (4)
  1. FORADIL [Concomitant]
     Active Substance: FORMOTEROL FUMARATE
  2. MIFLONIL [Concomitant]
     Active Substance: BUDESONIDE
  3. XOLAIR [Suspect]
     Active Substance: OMALIZUMAB
     Indication: ASTHMA
     Route: 065
     Dates: start: 201507
  4. CORTANCYL [Concomitant]
     Active Substance: PREDNISONE

REACTIONS (1)
  - Myocardial infarction [Recovered/Resolved]

NARRATIVE: CASE EVENT DATE: 201511
